FAERS Safety Report 18274274 (Version 1)
Quarter: 2020Q3

REPORT INFORMATION
  Report Type: Spontaneous
  Country: US (occurrence: US)
  Receive Date: 20200916
  Receipt Date: 20200916
  Transmission Date: 20201103
  Serious: No
  Sender: FDA-Public Use
  Company Number: US-PERRIGO-19US015239

PATIENT
  Age: 58 Year
  Sex: Female
  Weight: 74.83 kg

DRUGS (2)
  1. CLOBETASOL 0.05% [Suspect]
     Active Substance: CLOBETASOL
     Indication: DERMATITIS CONTACT
     Dosage: THIN LAYER, QD
     Route: 061
     Dates: start: 20191203
  2. CLOBETASOL PROPIONATE. [Suspect]
     Active Substance: CLOBETASOL PROPIONATE
     Indication: DERMATITIS CONTACT
     Dosage: THIN LAYER, QD
     Route: 061
     Dates: start: 20191127, end: 20191202

REACTIONS (2)
  - Off label use [Recovered/Resolved]
  - Application site pain [Not Recovered/Not Resolved]

NARRATIVE: CASE EVENT DATE: 201911
